FAERS Safety Report 13565079 (Version 1)
Quarter: 2017Q2

REPORT INFORMATION
  Report Type: Spontaneous
  Country: US (occurrence: US)
  Receive Date: 20170519
  Receipt Date: 20170519
  Transmission Date: 20170830
  Serious: No
  Sender: FDA-Public Use
  Company Number: US-SHIRE-US201710802

PATIENT
  Age: 32 Year
  Sex: Female
  Weight: 90.7 kg

DRUGS (1)
  1. XIIDRA [Suspect]
     Active Substance: LIFITEGRAST
     Indication: DRY EYE
     Dosage: 1 GTT, EACH EYE, 2X/DAY:BID
     Route: 047
     Dates: start: 20170504, end: 20170511

REACTIONS (2)
  - Instillation site pain [Recovered/Resolved]
  - Drug ineffective [Recovered/Resolved]

NARRATIVE: CASE EVENT DATE: 20170504
